FAERS Safety Report 19866307 (Version 4)
Quarter: 2021Q4

REPORT INFORMATION
  Report Type: Report from Study
  Country: CA (occurrence: CA)
  Receive Date: 20210921
  Receipt Date: 20211228
  Transmission Date: 20220303
  Serious: Yes (Hospitalization, Other)
  Sender: FDA-Public Use
  Company Number: CA-OTSUKA-2021_027492

PATIENT
  Age: 57 Year
  Sex: Female

DRUGS (2)
  1. CEDAZURIDINE\DECITABINE [Suspect]
     Active Substance: CEDAZURIDINE\DECITABINE
     Indication: Myelodysplastic syndrome
     Dosage: UNK, QD 1-5 DAYS EVERY 28 DAY CYCLE
     Route: 048
     Dates: start: 20210713
  2. CEDAZURIDINE\DECITABINE [Suspect]
     Active Substance: CEDAZURIDINE\DECITABINE
     Dosage: UNK, QD 1-3 DAYS EVERY 28 DAY CYCLE
     Route: 065

REACTIONS (9)
  - Multiple sclerosis [Unknown]
  - Urinary tract infection [Not Recovered/Not Resolved]
  - Platelet count decreased [Recovering/Resolving]
  - Furuncle [Unknown]
  - Oral pain [Unknown]
  - Fatigue [Unknown]
  - Headache [Unknown]
  - White blood cell count decreased [Not Recovered/Not Resolved]
  - Product use issue [Unknown]

NARRATIVE: CASE EVENT DATE: 20210811
